FAERS Safety Report 4285771-X (Version None)
Quarter: 2004Q1

REPORT INFORMATION
  Report Type: 
  Country: None (occurrence: None)
  Receive Date: 20040203
  Receipt Date: 20040119
  Transmission Date: 20041129
  Serious: Yes (Other)
  Sender: FDA-Public Use
  Company Number: S04-UK1-00235-01

PATIENT
  Age: 58 Year
  Sex: Female

DRUGS (6)
  1. CIPRALEX (ESCITALOPRAM) [Suspect]
     Indication: ANXIETY
     Dosage: 5 MG QD PO
     Route: 048
     Dates: start: 20031229, end: 20031230
  2. CIPRALEX (ESCITALOPRAM) [Suspect]
     Indication: DEPRESSION
     Dosage: 5 MG QD PO
     Route: 048
     Dates: start: 20031229, end: 20031230
  3. ATORVASTATIN [Concomitant]
  4. ATENOLOL [Concomitant]
  5. PERINDOPRIL [Concomitant]
  6. ASPIRIN [Concomitant]

REACTIONS (4)
  - CONDITION AGGRAVATED [None]
  - DIZZINESS [None]
  - HYPOTENSION [None]
  - MALAISE [None]
